FAERS Safety Report 4480488-0 (Version None)
Quarter: 2004Q4

REPORT INFORMATION
  Report Type: 
  Country: None (occurrence: None)
  Receive Date: 20041018
  Receipt Date: 20041006
  Transmission Date: 20050328
  Serious: Yes (Other)
  Sender: FDA-Public Use
  Company Number: US-JNJFOC-20041002911

PATIENT
  Age: 22 Year
  Sex: Female

DRUGS (1)
  1. EXTRA STRENGTH TYLENOL [Suspect]
     Indication: INTENTIONAL MISUSE
     Dosage: 12000 MG, 1 IN 1 TOTAL
     Dates: start: 20041005

REACTIONS (4)
  - INTENTIONAL OVERDOSE [None]
  - NAUSEA [None]
  - PAIN IN EXTREMITY [None]
  - VERTIGO [None]
